FAERS Safety Report 9997855 (Version 1)
Quarter: 2014Q1

REPORT INFORMATION
  Report Type: Report from Study
  Country: IN (occurrence: IN)
  Receive Date: 20140311
  Receipt Date: 20140311
  Transmission Date: 20141002
  Serious: Yes (Death, Other)
  Sender: FDA-Public Use
  Company Number: PHHY2014IN028698

PATIENT
  Age: 43 Year
  Sex: Female
  Weight: 54 kg

DRUGS (2)
  1. MYCOPHENOLIC ACID [Suspect]
     Indication: PROPHYLAXIS AGAINST TRANSPLANT REJECTION
     Dosage: 360 MG, TID
     Route: 048
     Dates: start: 20130907
  2. TACSANT [Concomitant]
     Dosage: 2.5 MG, BID
     Dates: start: 20130907, end: 20140121

REACTIONS (13)
  - Death [Fatal]
  - Lung disorder [Unknown]
  - Pulmonary cavitation [Unknown]
  - Thrombotic thrombocytopenic purpura [Unknown]
  - Platelet count decreased [Unknown]
  - Blood creatinine increased [Unknown]
  - Fungal sepsis [Unknown]
  - Pyrexia [Unknown]
  - Respiratory distress [Unknown]
  - Neurological decompensation [Unknown]
  - Blood lactate dehydrogenase increased [Unknown]
  - Cytomegalovirus infection [Unknown]
  - Haemoglobin decreased [Unknown]
